FAERS Safety Report 7463152-5 (Version None)
Quarter: 2011Q2

REPORT INFORMATION
  Report Type: 
  Country: None (occurrence: None)
  Receive Date: 20110506
  Receipt Date: 20110429
  Transmission Date: 20111010
  Serious: Yes (Hospitalization)
  Sender: FDA-Public Use
  Company Number: FR-PFIZER INC-2011092481

PATIENT
  Age: 50 Year
  Sex: Female

DRUGS (7)
  1. LIORESAL [Suspect]
     Indication: MUSCLE CONTRACTURE
     Dosage: UNK
     Route: 048
     Dates: start: 20100906
  2. AZATHIOPRINE [Suspect]
     Indication: MULTIPLE SCLEROSIS
     Dosage: UNK
     Route: 048
     Dates: start: 20050401, end: 20080301
  3. MITOXANTRONE HYDROCHLORIDE [Suspect]
     Indication: MULTIPLE SCLEROSIS
     Dosage: UNK
     Route: 042
     Dates: start: 20010301, end: 20010901
  4. ZOMIG [Suspect]
     Indication: MIGRAINE
     Dosage: 2.5 MG, 1X/DAY
     Route: 048
  5. ALFUZOSIN HCL [Suspect]
     Indication: BLADDER DYSFUNCTION
     Dosage: 10 MG, 1X/DAY
     Route: 048
     Dates: start: 19980101
  6. ZOLOFT [Suspect]
     Indication: DEPRESSION
     Dosage: 25 MG, 1X/DAY
     Route: 048
     Dates: start: 20060601
  7. TYSABRI [Suspect]
     Indication: MULTIPLE SCLEROSIS
     Dosage: 300 MG, 1X/DAY
     Route: 042
     Dates: start: 20080908

REACTIONS (1)
  - ENDOMETRIAL CANCER [None]
